FAERS Safety Report 14699780 (Version 2)
Quarter: 2018Q2

REPORT INFORMATION
  Report Type: Spontaneous
  Country: US (occurrence: US)
  Receive Date: 20180330
  Receipt Date: 20180510
  Transmission Date: 20180711
  Serious: Yes (Hospitalization)
  Sender: FDA-Public Use
  Company Number: US-PFIZER INC-2018130252

PATIENT
  Age: 60 Year
  Sex: Male
  Weight: 82.55 kg

DRUGS (8)
  1. CARVIDIL [Concomitant]
     Dosage: 2.5 MG, 2X/DAY
     Route: 048
  2. VALTREX [Concomitant]
     Active Substance: VALACYCLOVIR HYDROCHLORIDE
     Indication: NEOPLASM MALIGNANT
     Dosage: UNK
  3. AMITRIPTYLINE [Concomitant]
     Active Substance: AMITRIPTYLINE
     Indication: SLEEP DISORDER
     Dosage: 25 MG, 1X/DAY
     Route: 048
  4. AMLODIPINE [Concomitant]
     Active Substance: AMLODIPINE BESYLATE
     Indication: BLOOD PRESSURE ABNORMAL
     Dosage: 10 MG, 1X/DAY
     Route: 048
  5. LISINOPRIL. [Concomitant]
     Active Substance: LISINOPRIL
     Indication: BLOOD PRESSURE ABNORMAL
     Dosage: 40 MG, 1X/DAY
     Route: 048
  6. VFEND [Suspect]
     Active Substance: VORICONAZOLE
     Indication: NEOPLASM MALIGNANT
  7. VFEND [Suspect]
     Active Substance: VORICONAZOLE
     Indication: PROPHYLAXIS
     Dosage: 200 MG, 2X/DAY(1 TABLET EVERY 12 HOURS BY MOUTH)
     Route: 048
     Dates: start: 201801
  8. METFORMIN [Concomitant]
     Active Substance: METFORMIN HYDROCHLORIDE
     Indication: DIABETES MELLITUS
     Dosage: 1000 MG, 2X/DAY
     Route: 048

REACTIONS (3)
  - Platelet count decreased [Unknown]
  - Localised infection [Unknown]
  - Acute myeloid leukaemia recurrent [Unknown]
